FAERS Safety Report 9043186 (Version 1)
Quarter: 2013Q1

REPORT INFORMATION
  Report Type: Report from Study
  Country: US (occurrence: US)
  Receive Date: 20130129
  Receipt Date: 20130129
  Transmission Date: 20140127
  Serious: No
  Sender: FDA-Public Use
  Company Number: US-ABBOTT-12P-163-0914188-00

PATIENT
  Sex: Male
  Weight: 77.18 kg

DRUGS (6)
  1. HUMIRA 40 MG/0.8 ML PEN [Suspect]
     Indication: PSORIASIS
     Route: 058
     Dates: start: 201202
  2. METHOTREXATE [Concomitant]
     Indication: PSORIASIS
     Dates: start: 201011, end: 201111
  3. METHOTREXATE [Concomitant]
     Dates: start: 201202
  4. UNKNOWN MEDICATION [Concomitant]
     Indication: HYPERTENSION
  5. KENALOG [Concomitant]
     Indication: PSORIASIS
     Route: 061
  6. DESOXIDE [Concomitant]
     Indication: PSORIASIS

REACTIONS (4)
  - Psoriasis [Unknown]
  - Scab [Unknown]
  - Fatigue [Unknown]
  - Chills [Unknown]
